FAERS Safety Report 9735783 (Version 1)
Quarter: 2013Q4

REPORT INFORMATION
  Report Type: Spontaneous
  Country: US (occurrence: None)
  Receive Date: 20131204
  Receipt Date: 20131204
  Transmission Date: 20140711
  Serious: Yes (Hospitalization, Other)
  Sender: FDA-Public Use
  Company Number: US-ZYDUS-002448

PATIENT
  Age: 67 Year
  Sex: Female

DRUGS (1)
  1. CARVEDILOL (CARVEDILOL) [Suspect]
     Dosage: 3.13 MG-2:00 TIMER / PER -1.0DAYS

REACTIONS (9)
  - Drug-induced liver injury [None]
  - Nausea [None]
  - Abdominal tenderness [None]
  - Cholelithiasis [None]
  - Gallbladder disorder [None]
  - Localised intraabdominal fluid collection [None]
  - Localised intraabdominal fluid collection [None]
  - Liver injury [None]
  - Hepatic necrosis [None]
